FAERS Safety Report 9433572 (Version 1)
Quarter: 2013Q3

REPORT INFORMATION
  Report Type: Spontaneous
  Country: GB (occurrence: GB)
  Receive Date: 20130731
  Receipt Date: 20130731
  Transmission Date: 20140515
  Serious: Yes (Life-Threatening, Hospitalization, Other)
  Sender: FDA-Public Use
  Company Number: GB-ACTAVIS-2013-13387

PATIENT
  Age: 59 Year
  Sex: Female

DRUGS (5)
  1. HYDROCORTISONE (UNKNOWN) [Suspect]
     Indication: PRODUCT USED FOR UNKNOWN INDICATION
     Dosage: UNK UNK, UNKNOWN
     Route: 065
  2. METYRAPONE [Suspect]
     Indication: CUSHING^S SYNDROME
     Dosage: UNK, UNKNOWN
     Route: 065
     Dates: start: 19970708
  3. METYRAPONE [Suspect]
     Dosage: 1750 MG, UNKNOWN
     Dates: start: 19970808
  4. METYRAPONE [Suspect]
     Dosage: 250 MG, BID
     Route: 048
     Dates: start: 19970826
  5. METYRAPONE [Suspect]
     Dosage: 500 MG, TID
     Route: 065
     Dates: start: 1998

REACTIONS (3)
  - Adrenal insufficiency [Recovered/Resolved]
  - Ovarian cancer [Unknown]
  - Joint swelling [Not Recovered/Not Resolved]
